FAERS Safety Report 4739386-7 (Version None)
Quarter: 2005Q3

REPORT INFORMATION
  Report Type: 
  Country: None (occurrence: None)
  Receive Date: 20050810
  Receipt Date: 20050110
  Transmission Date: 20060218
  Serious: No
  Sender: FDA-Public Use
  Company Number: US-GLAXOSMITHKLINE-A0542402A

PATIENT
  Sex: Female
  Weight: 69.1 kg

DRUGS (4)
  1. PAXIL [Suspect]
     Indication: ANXIETY
     Dosage: 20MG PER DAY
     Route: 048
     Dates: start: 20000101, end: 20001101
  2. BUSPAR [Concomitant]
     Indication: ANXIETY
     Dosage: 15MG TWICE PER DAY
     Route: 048
     Dates: start: 20000717, end: 20000731
  3. XANAX [Concomitant]
     Indication: ANXIETY
     Dosage: .25MG TWICE PER DAY
     Route: 048
  4. SERZONE [Concomitant]
     Indication: ANXIETY
     Dosage: 300MG PER DAY
     Route: 048
     Dates: start: 20001101, end: 20010301

REACTIONS (6)
  - DRUG WITHDRAWAL SYNDROME [None]
  - FEELING JITTERY [None]
  - NAUSEA [None]
  - NERVOUSNESS [None]
  - SEXUAL DYSFUNCTION [None]
  - WEIGHT INCREASED [None]
